FAERS Safety Report 6728684-3 (Version None)
Quarter: 2010Q2

REPORT INFORMATION
  Report Type: 
  Country: None (occurrence: None)
  Receive Date: 20100517
  Receipt Date: 20100427
  Transmission Date: 20101027
  Serious: Yes (Death, Hospitalization)
  Sender: FDA-Public Use
  Company Number: PHHO2010US06482

PATIENT
  Sex: Male
  Weight: 72 kg

DRUGS (5)
  1. AFINITOR [Suspect]
     Indication: DIFFUSE LARGE B-CELL LYMPHOMA
     Dosage: 5 MG/ DAILY
     Route: 048
     Dates: start: 20100407, end: 20100412
  2. RITUXIMAB COMP_RIT+ [Suspect]
     Indication: DIFFUSE LARGE B-CELL LYMPHOMA
     Dosage: UNK
     Route: 048
     Dates: start: 20100407
  3. PRILOSEC [Concomitant]
  4. COLACE [Concomitant]
  5. MIRALAX [Concomitant]

REACTIONS (14)
  - ATELECTASIS [None]
  - BLOOD URIC ACID ABNORMAL [None]
  - BODY TEMPERATURE INCREASED [None]
  - COUGH [None]
  - DEHYDRATION [None]
  - DISEASE PROGRESSION [None]
  - FAILURE TO THRIVE [None]
  - HYPOXIA [None]
  - MOUTH ULCERATION [None]
  - PLATELET DISORDER [None]
  - PNEUMONIA ASPIRATION [None]
  - PULMONARY OEDEMA [None]
  - THROMBOCYTOPENIA [None]
  - UNRESPONSIVE TO STIMULI [None]
